FAERS Safety Report 8525050-5 (Version None)
Quarter: 2012Q3

REPORT INFORMATION
  Report Type: 
  Country: None (occurrence: None)
  Receive Date: 20120720
  Receipt Date: 20120717
  Transmission Date: 20120928
  Serious: No
  Sender: FDA-Public Use
  Company Number: US-B.I. PHARMACEUTICALS,INC./RIDGEFIELD-2012-BP-15464BP

PATIENT
  Sex: Male

DRUGS (5)
  1. VERAPAMIL [Concomitant]
     Indication: HYPERTENSION
     Dosage: 120 MG
     Route: 048
     Dates: end: 20120710
  2. PRADAXA [Suspect]
     Dosage: 150 MG
     Route: 048
     Dates: start: 20120710
  3. TARKA [Concomitant]
     Indication: BLOOD PRESSURE
  4. PRADAXA [Suspect]
     Indication: ATRIAL FIBRILLATION
     Dosage: 300 MG
     Route: 048
     Dates: start: 20110701, end: 20120710
  5. COREG [Concomitant]
     Indication: HYPERTENSION
     Route: 048

REACTIONS (6)
  - DIZZINESS [None]
  - RENAL IMPAIRMENT [None]
  - HYPOTENSION [None]
  - SLUGGISHNESS [None]
  - HYPERTENSION [None]
  - FATIGUE [None]
